FAERS Safety Report 7533787-X (Version None)
Quarter: 2011Q2

REPORT INFORMATION
  Report Type: 
  Country: None (occurrence: None)
  Receive Date: 20110608
  Receipt Date: 20110524
  Transmission Date: 20111010
  Serious: Yes (Hospitalization)
  Sender: FDA-Public Use
  Company Number: GB-GENENTECH-310524

PATIENT
  Sex: Female

DRUGS (6)
  1. CICLESONIDE [Concomitant]
     Indication: PRODUCT USED FOR UNKNOWN INDICATION
  2. XOLAIR [Suspect]
     Indication: ASTHMA
     Dosage: 225 MG, Q2W
     Route: 042
     Dates: start: 20080912, end: 20090611
  3. THEOPHYLLINE [Concomitant]
     Indication: PRODUCT USED FOR UNKNOWN INDICATION
  4. SERETIDE [Concomitant]
     Indication: PRODUCT USED FOR UNKNOWN INDICATION
  5. TERBUTALINE SULFATE [Concomitant]
     Indication: PRODUCT USED FOR UNKNOWN INDICATION
  6. MONTELUKAST SODIUM [Concomitant]
     Indication: PRODUCT USED FOR UNKNOWN INDICATION

REACTIONS (6)
  - DRUG INEFFECTIVE [None]
  - WHEEZING [None]
  - ASTHMA [None]
  - DRUG HYPERSENSITIVITY [None]
  - DYSPNOEA [None]
  - PALPITATIONS [None]
